FAERS Safety Report 10039764 (Version 1)
Quarter: 2014Q1

REPORT INFORMATION
  Report Type: Spontaneous
  Country: BE (occurrence: HR)
  Receive Date: 20140326
  Receipt Date: 20140326
  Transmission Date: 20141002
  Serious: Yes (Hospitalization, Other)
  Sender: FDA-Public Use
  Company Number: BE-PFIZER INC-2014082668

PATIENT
  Age: 77 Year
  Sex: Female

DRUGS (1)
  1. CRIZOTINIB [Suspect]
     Indication: NON-SMALL CELL LUNG CANCER
     Dosage: UNK
     Dates: start: 2013

REACTIONS (7)
  - Chylothorax [Unknown]
  - Embolism [Recovered/Resolved]
  - Pleural effusion [Unknown]
  - Fluid retention [Unknown]
  - Dizziness [Unknown]
  - Nausea [Recovering/Resolving]
  - Dysgeusia [Recovering/Resolving]
